FAERS Safety Report 22751187 (Version 3)
Quarter: 2024Q4

REPORT INFORMATION
  Report Type: Spontaneous
  Country: JP (occurrence: JP)
  Receive Date: 20230726
  Receipt Date: 20241030
  Transmission Date: 20250114
  Serious: Yes (Life-Threatening, Other)
  Sender: ASTELLAS
  Company Number: JP-ASTELLAS-2023JP008762

PATIENT
  Age: 1 Year
  Sex: Male
  Weight: 7 kg

DRUGS (2)
  1. PROGRAF [Suspect]
     Active Substance: TACROLIMUS
     Indication: Small intestine transplant
     Route: 048
     Dates: start: 20180701, end: 201907
  2. PROGRAF [Suspect]
     Active Substance: TACROLIMUS
     Indication: Liver transplant
     Route: 048

REACTIONS (11)
  - Respiratory tract haemorrhage [Recovering/Resolving]
  - Hepatic failure [Unknown]
  - Renal impairment [Unknown]
  - Hepatic failure [Unknown]
  - Hepatic encephalopathy [Unknown]
  - Depressed level of consciousness [Recovered/Resolved]
  - Liver disorder [Unknown]
  - Bacterial translocation [Unknown]
  - Hepatic fibrosis [Unknown]
  - Hepatic steatosis [Unknown]
  - Immunosuppressant drug level increased [Recovered/Resolved]

NARRATIVE: CASE EVENT DATE: 20180701
